FAERS Safety Report 8326904-5 (Version None)
Quarter: 2012Q2

REPORT INFORMATION
  Report Type: 
  Country: None (occurrence: None)
  Receive Date: 20120501
  Receipt Date: 20120424
  Transmission Date: 20120825
  Serious: Yes (Other)
  Sender: FDA-Public Use
  Company Number: US-PFIZER INC-2012048015

PATIENT
  Sex: Male
  Weight: 86.168 kg

DRUGS (5)
  1. LYRICA [Suspect]
     Indication: NEURALGIA
     Dosage: 50 MG, 2X/DAY
     Dates: start: 20100101
  2. IBUPROFEN [Concomitant]
     Indication: POST PROCEDURAL OEDEMA
     Dosage: 300 MG, 3X/DAY
  3. HYDROCODONE [Concomitant]
     Indication: PAIN
     Dosage: UNK, 2X/DAY
  4. CYCLOBENZAPRINE [Concomitant]
     Indication: MUSCLE SPASMS
     Dosage: 10 MG, 3X/DAY
  5. IBUPROFEN [Concomitant]
     Indication: PROCEDURAL SITE REACTION

REACTIONS (7)
  - NERVE COMPRESSION [None]
  - SCRATCH [None]
  - FACET JOINT SYNDROME [None]
  - DRUG INEFFECTIVE [None]
  - INTERVERTEBRAL DISC DEGENERATION [None]
  - EXOSTOSIS [None]
  - INTERVERTEBRAL DISC PROTRUSION [None]
